FAERS Safety Report 12184055 (Version 2)
Quarter: 2016Q1

REPORT INFORMATION
  Report Type: Report from Study
  Country: US (occurrence: US)
  Receive Date: 20160316
  Receipt Date: 20160324
  Transmission Date: 20160526
  Serious: Yes (Hospitalization)
  Sender: FDA-Public Use
  Company Number: US-BAYER-2016-042203

PATIENT
  Age: 52 Year
  Sex: Female
  Weight: 61.22 kg

DRUGS (4)
  1. ADEMPAS [Suspect]
     Active Substance: RIOCIGUAT
     Indication: PULMONARY ARTERIAL HYPERTENSION
     Dosage: UNK
     Dates: start: 20160205
  2. RESTORIL [Concomitant]
     Active Substance: TEMAZEPAM
     Dosage: UNK
     Dates: end: 20160214
  3. LASIX [Concomitant]
     Active Substance: FUROSEMIDE
  4. ADEMPAS [Suspect]
     Active Substance: RIOCIGUAT
     Indication: PULMONARY ARTERIAL HYPERTENSION
     Dosage: 1 MG, TID
     Route: 048

REACTIONS (12)
  - Pulmonary hypertension [None]
  - Atrial fibrillation [None]
  - Dyspnoea exertional [None]
  - Cardiac disorder [Unknown]
  - Swelling face [Unknown]
  - Hypotension [None]
  - Thrombosis [Unknown]
  - Dyspnoea [Unknown]
  - Disorientation [Unknown]
  - Swelling [None]
  - Peripheral swelling [Unknown]
  - Pharyngeal disorder [Unknown]
